FAERS Safety Report 8606621-4 (Version None)
Quarter: 2012Q3

REPORT INFORMATION
  Report Type: 
  Country: None (occurrence: None)
  Receive Date: 20120820
  Receipt Date: 20120817
  Transmission Date: 20120928
  Serious: Yes (Hospitalization, Disabling, Other)
  Sender: FDA-Public Use
  Company Number: US-TEVA-346722USA

PATIENT
  Sex: Female

DRUGS (4)
  1. PROPOXYPHENE NAPSYLATE W/ ACETAMINOPHEN [Suspect]
     Indication: PAIN
     Dosage: 1-2 TAB Q 4-6 HRS PRN FOR PAIN
  2. MOBIC [Suspect]
  3. PROPOXYPHENE HYDROCHLORIDE [Suspect]
  4. DARVON [Suspect]

REACTIONS (2)
  - ARRHYTHMIA [None]
  - ATRIOVENTRICULAR BLOCK SECOND DEGREE [None]
